FAERS Safety Report 7407350-5 (Version None)
Quarter: 2011Q2

REPORT INFORMATION
  Report Type: 
  Country: None (occurrence: None)
  Receive Date: 20110411
  Receipt Date: 20110329
  Transmission Date: 20111010
  Serious: Yes (Hospitalization, Other)
  Sender: FDA-Public Use
  Company Number: US-ELI_LILLY_AND_COMPANY-US201101001790

PATIENT
  Sex: Female

DRUGS (8)
  1. NAPROXEN [Concomitant]
  2. TRAVATAN [Concomitant]
  3. FORTEO [Suspect]
     Dosage: 20 UG, QD
     Route: 065
  4. COMBIGAN [Concomitant]
  5. LISINOPRIL [Concomitant]
  6. FORTEO [Suspect]
     Indication: OSTEOPOROSIS
     Dosage: UNK, UNKNOWN
     Route: 065
     Dates: start: 20090501
  7. AZOPT [Concomitant]
  8. TYLENOL (CAPLET) [Concomitant]

REACTIONS (10)
  - ALOPECIA [None]
  - JOINT INJURY [None]
  - LIMB INJURY [None]
  - PAIN IN EXTREMITY [None]
  - FATIGUE [None]
  - HAEMORRHAGE [None]
  - GASTRIC ULCER HAEMORRHAGE [None]
  - COMPRESSION FRACTURE [None]
  - ECZEMA [None]
  - GAIT DISTURBANCE [None]
